FAERS Safety Report 20537065 (Version 1)
Quarter: 2022Q1

REPORT INFORMATION
  Report Type: Spontaneous
  Country: US (occurrence: US)
  Receive Date: 20220302
  Receipt Date: 20220302
  Transmission Date: 20220423
  Serious: Yes (Other)
  Sender: FDA-Public Use
  Company Number: US-BAYER-2022A027940

PATIENT
  Age: 84 Year
  Sex: Female

DRUGS (1)
  1. CORICIDIN HBP MAXIMUM STRENGTH COLD, COUGH AND FLU [Suspect]
     Active Substance: ACETAMINOPHEN\DEXTROMETHORPHAN HYDROBROMIDE\GUAIFENESIN
     Dosage: 2 DF
     Route: 065
     Dates: start: 20220222, end: 20220222

REACTIONS (3)
  - Choking [None]
  - Vomiting [None]
  - Product use complaint [None]

NARRATIVE: CASE EVENT DATE: 20220222
